FAERS Safety Report 24767790 (Version 3)
Quarter: 2025Q1

REPORT INFORMATION
  Report Type: Report from Study
  Country: US (occurrence: US)
  Receive Date: 20241223
  Receipt Date: 20250205
  Transmission Date: 20250409
  Serious: Yes (Death)
  Sender: PFIZER
  Company Number: US-PFIZER INC-PV202400167483

PATIENT
  Age: 54 Year
  Sex: Male
  Weight: 70.8 kg

DRUGS (2)
  1. VOXELOTOR [Suspect]
     Active Substance: VOXELOTOR
     Dosage: 500 MG, TID
     Dates: start: 20220228, end: 20240312
  2. BUMETANIDE [Concomitant]
     Active Substance: BUMETANIDE
     Route: 048
     Dates: start: 20240909

REACTIONS (1)
  - Death [Fatal]

NARRATIVE: CASE EVENT DATE: 20240918
